FAERS Safety Report 11252979 (Version 1)
Quarter: 2015Q3

REPORT INFORMATION
  Report Type: Spontaneous
  Country: US (occurrence: None)
  Receive Date: 20150708
  Receipt Date: 20150708
  Transmission Date: 20151125
  Serious: No
  Sender: FDA-Public Use
  Company Number: None

PATIENT
  Age: 56 Year
  Sex: Female

DRUGS (1)
  1. HUMIRA [Suspect]
     Active Substance: ADALIMUMAB
     Dosage: 40MG  Q2W  SQ
     Route: 058
     Dates: start: 20131018, end: 20150701

REACTIONS (2)
  - Systemic lupus erythematosus rash [None]
  - White blood cell disorder [None]

NARRATIVE: CASE EVENT DATE: 20150701
